FAERS Safety Report 17926721 (Version 1)
Quarter: 2020Q2

REPORT INFORMATION
  Report Type: Report from Study
  Country: None (occurrence: US)
  Receive Date: 20200623
  Receipt Date: 20200623
  Transmission Date: 20200714
  Serious: Yes (Hospitalization)
  Sender: FDA-Public Use
  Company Number: US-ABBVIE-20K-163-3409512-00

PATIENT
  Sex: Male

DRUGS (2)
  1. HUMIRA [Suspect]
     Active Substance: ADALIMUMAB
     Route: 058
  2. HUMIRA [Suspect]
     Active Substance: ADALIMUMAB
     Indication: COLITIS ULCERATIVE
     Route: 058

REACTIONS (9)
  - Chromaturia [Unknown]
  - Intestinal mucosal tear [Unknown]
  - Blood creatinine increased [Unknown]
  - Hypertension [Unknown]
  - Hypertension [Recovered/Resolved]
  - Blood potassium abnormal [Unknown]
  - Blood potassium abnormal [Recovered/Resolved]
  - Red blood cells urine positive [Unknown]
  - Renal failure [Unknown]

NARRATIVE: CASE EVENT DATE: 2003
